FAERS Safety Report 4557411-3 (Version None)
Quarter: 2005Q1

REPORT INFORMATION
  Report Type: 
  Country: None (occurrence: None)
  Receive Date: 20050120
  Receipt Date: 20050114
  Transmission Date: 20050727
  Serious: Yes (Hospitalization)
  Sender: FDA-Public Use
  Company Number: US-ABBOTT-05P-163-0286918-00

PATIENT
  Sex: Female
  Weight: 58.112 kg

DRUGS (5)
  1. DEPAKOTE ER [Suspect]
     Indication: BIPOLAR DISORDER
     Route: 048
     Dates: start: 20040701, end: 20041101
  2. DEPAKOTE ER [Suspect]
     Route: 048
     Dates: start: 20041101
  3. RISPERIDONE [Concomitant]
     Indication: BIPOLAR DISORDER
     Route: 048
     Dates: start: 20040701, end: 20041225
  4. TRAZODONE HCL [Concomitant]
     Indication: BIPOLAR DISORDER
     Route: 048
     Dates: start: 20040701
  5. BENZATROPINE MESILATE [Concomitant]
     Indication: BIPOLAR DISORDER
     Route: 048
     Dates: start: 20050110

REACTIONS (5)
  - BALANCE DISORDER [None]
  - COMA [None]
  - COUGH [None]
  - RESPIRATORY ARREST [None]
  - TREMOR [None]
